FAERS Safety Report 13787183 (Version 1)
Quarter: 2017Q3

REPORT INFORMATION
  Report Type: Report from Study
  Country: CA (occurrence: CA)
  Receive Date: 20170725
  Receipt Date: 20170725
  Transmission Date: 20171127
  Serious: Yes (Other)
  Sender: FDA-Public Use
  Company Number: CA-GLAXOSMITHKLINE-CA2017GSK053517

PATIENT
  Age: 22 Year
  Sex: Female

DRUGS (2)
  1. MEPOLIZUMAB [Suspect]
     Active Substance: MEPOLIZUMAB
     Indication: ASTHMA
     Dosage: 100 MG, Z
     Route: 042
     Dates: start: 20170315
  2. MEPOLIZUMAB [Suspect]
     Active Substance: MEPOLIZUMAB
     Dosage: 100 MG, Z
     Route: 042
     Dates: start: 20170609

REACTIONS (8)
  - Headache [Unknown]
  - Dizziness [Unknown]
  - Ear infection [Unknown]
  - Sinusitis [Unknown]
  - Nasal congestion [Unknown]
  - Lung infection [Unknown]
  - Ligament sprain [Unknown]
  - Malaise [Unknown]

NARRATIVE: CASE EVENT DATE: 20170425
